FAERS Safety Report 7344723-3 (Version None)
Quarter: 2011Q1

REPORT INFORMATION
  Report Type: 
  Country: None (occurrence: None)
  Receive Date: 20110310
  Receipt Date: 20110225
  Transmission Date: 20110831
  Serious: Yes (Other)
  Sender: FDA-Public Use
  Company Number: PHHY2010CA41845

PATIENT
  Sex: Female

DRUGS (1)
  1. ZOMETA [Suspect]
     Indication: BREAST CANCER METASTATIC
     Dosage: 4 MG EVERY 12 WEEKS
     Route: 042
     Dates: start: 20100325

REACTIONS (8)
  - NEUTROPHIL COUNT DECREASED [None]
  - LYMPHOCYTE COUNT DECREASED [None]
  - CARBON DIOXIDE INCREASED [None]
  - MEAN CELL VOLUME INCREASED [None]
  - BRAIN NEOPLASM [None]
  - MEAN CELL HAEMOGLOBIN INCREASED [None]
  - RED CELL DISTRIBUTION WIDTH INCREASED [None]
  - ASPARTATE AMINOTRANSFERASE INCREASED [None]
